FAERS Safety Report 5319688-6 (Version None)
Quarter: 2007Q2

REPORT INFORMATION
  Report Type: 
  Country: None (occurrence: None)
  Receive Date: 20070508
  Receipt Date: 20070430
  Transmission Date: 20071010
  Serious: Yes (Life-Threatening)
  Sender: FDA-Public Use
  Company Number: GB-SHR-GB-2007-000985

PATIENT
  Age: 30 Year
  Sex: Female

DRUGS (1)
  1. YASMIN [Suspect]
     Indication: ORAL CONTRACEPTION
     Route: 048
     Dates: end: 20061130

REACTIONS (4)
  - CAROTID ARTERY DISSECTION [None]
  - CEREBRAL INFARCTION [None]
  - HEADACHE [None]
  - MUSCULAR WEAKNESS [None]
